FAERS Safety Report 11241380 (Version 2)
Quarter: 2015Q3

REPORT INFORMATION
  Report Type: Spontaneous
  Country: US (occurrence: US)
  Receive Date: 20150706
  Receipt Date: 20150813
  Transmission Date: 20151125
  Serious: No
  Sender: FDA-Public Use
  Company Number: US-ELI_LILLY_AND_COMPANY-US201506007368

PATIENT
  Sex: Female

DRUGS (3)
  1. HUMATROPE [Suspect]
     Active Substance: SOMATROPIN
     Indication: BLOOD GROWTH HORMONE
     Dosage: 0.30 MG, QD
     Route: 065
     Dates: start: 2009
  2. HUMATROPE [Suspect]
     Active Substance: SOMATROPIN
     Dosage: 0.30 MG, QD
     Route: 065
  3. HUMATROPE [Suspect]
     Active Substance: SOMATROPIN
     Indication: PITUITARY TUMOUR
     Dosage: 0.30 MG, QD
     Route: 065

REACTIONS (1)
  - Incorrect dose administered [Unknown]
